FAERS Safety Report 8153804-6 (Version None)
Quarter: 2012Q1

REPORT INFORMATION
  Report Type: 
  Country: None (occurrence: None)
  Receive Date: 20120221
  Receipt Date: 20120214
  Transmission Date: 20120608
  Serious: Yes (Other)
  Sender: FDA-Public Use
  Company Number: JP-GLAXOSMITHKLINE-B0782264A

PATIENT
  Age: 43 Year
  Sex: Female

DRUGS (2)
  1. VALTREX [Suspect]
     Indication: GENITAL HERPES
     Dosage: 500MG PER DAY
     Route: 048
     Dates: start: 20120204, end: 20120213
  2. ARASENA-A [Concomitant]
     Indication: GENITAL HERPES
     Route: 061
     Dates: start: 20120204

REACTIONS (2)
  - HAEMATOCHEZIA [None]
  - DIARRHOEA [None]
